FAERS Safety Report 9596688 (Version 1)
Quarter: 2013Q4

REPORT INFORMATION
  Report Type: Spontaneous
  Country: US (occurrence: US)
  Receive Date: 20131004
  Receipt Date: 20131004
  Transmission Date: 20140711
  Serious: Yes (Death, Hospitalization)
  Sender: FDA-Public Use
  Company Number: US-GLAXOSMITHKLINE-A1043490A

PATIENT
  Age: 70 Year
  Sex: Male

DRUGS (22)
  1. ADVAIR [Suspect]
     Indication: CHRONIC OBSTRUCTIVE PULMONARY DISEASE
     Dosage: 1PUFF PER DAY
     Route: 055
  2. DIGOXIN [Concomitant]
  3. ASPIRIN [Concomitant]
  4. ALBUTEROL NEBULIZER [Concomitant]
  5. COREG [Concomitant]
  6. LORAZEPAM [Concomitant]
  7. PULMICORT [Concomitant]
  8. DUONEB [Concomitant]
  9. MULTIVITAMIN [Concomitant]
  10. REMERON [Concomitant]
  11. AMBIEN [Concomitant]
  12. FUROSEMIDE [Concomitant]
  13. DIOVAN [Concomitant]
  14. UNSPECIFIED MEDICATION [Concomitant]
  15. MEGACE [Concomitant]
  16. MAGNESIUM [Concomitant]
  17. CORDARONE [Concomitant]
  18. SODIUM CHLORIDE [Concomitant]
  19. VANCOMYCIN [Concomitant]
  20. ZEBETA [Concomitant]
  21. BACTROBAN [Concomitant]
  22. PROTONIX [Concomitant]

REACTIONS (3)
  - Death [Fatal]
  - Cardiac failure congestive [Unknown]
  - Chronic obstructive pulmonary disease [Unknown]
